FAERS Safety Report 21753387 (Version 3)
Quarter: 2023Q1

REPORT INFORMATION
  Report Type: Spontaneous
  Country: AR (occurrence: AR)
  Receive Date: 20221220
  Receipt Date: 20230111
  Transmission Date: 20230418
  Serious: Yes (Death, Hospitalization)
  Sender: FDA-Public Use
  Company Number: AR-MYLANLABS-2022M1140031

PATIENT
  Sex: Male

DRUGS (3)
  1. CLOZAPINE [Suspect]
     Active Substance: CLOZAPINE
     Indication: Schizophrenia
     Dosage: UNK (5 AND ? TABLETS)
     Route: 065
     Dates: start: 201307
  2. VALPROATE SODIUM [Concomitant]
     Active Substance: VALPROATE SODIUM
     Dosage: UNK
     Route: 065
  3. CLONAZEPAM [Concomitant]
     Active Substance: CLONAZEPAM
     Dosage: UNK
     Route: 065

REACTIONS (6)
  - Sepsis [Fatal]
  - COVID-19 pneumonia [Unknown]
  - Confusional state [Unknown]
  - Drug resistance [Unknown]
  - Platelet count decreased [Unknown]
  - Haematocrit decreased [Unknown]
